FAERS Safety Report 8308327-8 (Version None)
Quarter: 2012Q2

REPORT INFORMATION
  Report Type: 
  Country: None (occurrence: None)
  Receive Date: 20120424
  Receipt Date: 20120410
  Transmission Date: 20120825
  Serious: Yes (Other)
  Sender: FDA-Public Use
  Company Number: US-ROCHE-1058874

PATIENT

DRUGS (4)
  1. DACLATASVIR [Suspect]
     Indication: HEPATITIS C
  2. PEGINTERFERON ALFA-2A [Suspect]
     Indication: HEPATITIS C
  3. ASUNAPREVIR [Suspect]
     Indication: HEPATITIS C
  4. COPEGUS [Suspect]
     Indication: HEPATITIS C

REACTIONS (4)
  - LYMPHOPENIA [None]
  - WHITE BLOOD CELL COUNT DECREASED [None]
  - NEUTROPENIA [None]
  - BLOOD PHOSPHORUS DECREASED [None]
